FAERS Safety Report 22328147 (Version 1)
Quarter: 2023Q2

REPORT INFORMATION
  Report Type: Spontaneous
  Country: CN (occurrence: CN)
  Receive Date: 20230516
  Receipt Date: 20230516
  Transmission Date: 20230721
  Serious: Yes (Hospitalization, Other)
  Sender: FDA-Public Use
  Company Number: CN-009507513-2305CHN003456

PATIENT
  Age: 83 Year
  Sex: Male
  Weight: 51 kg

DRUGS (2)
  1. CILASTATIN SODIUM\IMIPENEM [Suspect]
     Active Substance: CILASTATIN SODIUM\IMIPENEM
     Indication: Pneumonia
     Dosage: DOSE: 1 G, FREQUENCY: 3 TIMES A DAY (TID)
     Route: 041
     Dates: start: 20230430, end: 20230503
  2. MOXIFLOXACIN [Concomitant]
     Active Substance: MOXIFLOXACIN
     Indication: Anti-infective therapy
     Dosage: UNK
     Dates: start: 20230430, end: 20230503

REACTIONS (3)
  - Gastrointestinal disorder [Recovering/Resolving]
  - Decreased appetite [Recovered/Resolved]
  - Chest discomfort [Recovered/Resolved]

NARRATIVE: CASE EVENT DATE: 20230503
